FAERS Safety Report 6910519-7 (Version None)
Quarter: 2010Q3

REPORT INFORMATION
  Report Type: 
  Country: None (occurrence: None)
  Receive Date: 20100806
  Receipt Date: 20100728
  Transmission Date: 20110219
  Serious: Yes (Disabling, Other)
  Sender: FDA-Public Use
  Company Number: PHHY2010BR36594

PATIENT
  Age: 37 Year
  Sex: Female

DRUGS (2)
  1. PARLODEL [Suspect]
     Indication: PITUITARY TUMOUR
     Dosage: 2.5 MG, BID
  2. PARLODEL [Suspect]
     Dosage: HALF TABLET (1.25 MG)

REACTIONS (6)
  - BLOOD PROLACTIN INCREASED [None]
  - CONFUSIONAL STATE [None]
  - FEELING ABNORMAL [None]
  - HEADACHE [None]
  - NAUSEA [None]
  - TREMOR [None]
